FAERS Safety Report 7746024-8 (Version None)
Quarter: 2011Q3

REPORT INFORMATION
  Report Type: 
  Country: None (occurrence: None)
  Receive Date: 20110913
  Receipt Date: 20110524
  Transmission Date: 20111222
  Serious: Yes (Hospitalization, Other)
  Sender: FDA-Public Use
  Company Number: FR-ELI_LILLY_AND_COMPANY-FR201105006794

PATIENT
  Sex: Female

DRUGS (9)
  1. COUMADIN [Concomitant]
     Dosage: 3 MG, QOD
     Route: 048
     Dates: start: 20100801, end: 20110331
  2. CORDARONE [Concomitant]
     Indication: ATRIAL FLUTTER
     Dosage: 1 DF, 5/W
  3. CYMBALTA [Suspect]
     Indication: DEPRESSION
     Dosage: 30 MG, EACH EVENING
     Route: 048
     Dates: start: 20110330, end: 20110331
  4. BUMETANIDE [Concomitant]
     Indication: CARDIAC DISORDER
     Dosage: 5 MG, QD
     Route: 048
  5. OXAZEPAM [Concomitant]
     Indication: DEPRESSION
     Dosage: 25 MG, QD
     Route: 048
  6. ACETAMINOPHEN [Concomitant]
     Dosage: 3 G, QD
     Route: 048
  7. ATORVASTATIN CALCIUM [Concomitant]
     Indication: DYSLIPIDAEMIA
     Dosage: 10 MG, QD
  8. COUMADIN [Concomitant]
     Indication: PULMONARY EMBOLISM
     Dosage: 2 MG, QOD
     Route: 048
     Dates: start: 20100801, end: 20110331
  9. NITRODERM [Concomitant]
     Dosage: 10 MG, UNK
     Route: 062

REACTIONS (2)
  - INTERNATIONAL NORMALISED RATIO INCREASED [None]
  - DRUG INTERACTION [None]
